FAERS Safety Report 4748233-9 (Version None)
Quarter: 2005Q3

REPORT INFORMATION
  Report Type: 
  Country: None (occurrence: None)
  Receive Date: 20050818
  Receipt Date: 20050809
  Transmission Date: 20060218
  Serious: Yes (Other)
  Sender: FDA-Public Use
  Company Number: PHBS2005JP11786

PATIENT
  Age: 78 Year
  Sex: Male

DRUGS (1)
  1. LAMISIL [Suspect]
     Route: 048

REACTIONS (3)
  - ASTHENIA [None]
  - RHABDOMYOLYSIS [None]
  - SPONDYLOPATHY TRAUMATIC [None]
